FAERS Safety Report 21130989 (Version 2)
Quarter: 2022Q3

REPORT INFORMATION
  Report Type: Spontaneous
  Country: SE (occurrence: SE)
  Receive Date: 20220726
  Receipt Date: 20220726
  Transmission Date: 20221026
  Serious: Yes (Hospitalization, Other)
  Sender: FDA-Public Use
  Company Number: SE-ROCHE-3134602

PATIENT
  Age: 47 Year
  Sex: Female

DRUGS (1)
  1. RITUXIMAB [Suspect]
     Active Substance: RITUXIMAB
     Indication: Multiple sclerosis
     Dosage: UNK
     Route: 042

REACTIONS (11)
  - Ureaplasma infection [Recovered/Resolved]
  - Urinary tract infection [Recovered/Resolved]
  - Bartholinitis [Recovered/Resolved]
  - Haematuria [Unknown]
  - Abdominal abscess [Unknown]
  - Blood immunoglobulin G decreased [Unknown]
  - Vulval abscess [Unknown]
  - Ileus [Unknown]
  - Pneumonia [Unknown]
  - Bladder hypertrophy [Unknown]
  - Impaired healing [Unknown]
